FAERS Safety Report 4784484 (Version 2)
Quarter: 2013Q4

REPORT INFORMATION
  Report Type: Spontaneous
  Country: US (occurrence: None)
  Receive Date: 19910311
  Receipt Date: 20131216
  Transmission Date: 20140711
  Serious: Yes (Hospitalization)
  Sender: FDA-Public Use
  Company Number: 070990

PATIENT
  Sex: Female

DRUGS (2)
  1. CIMZIA [Suspect]
     Indication: CROHN^S DISEASE
     Dosage: (200 MG /4 WEEKS SUBCUTANEOUS)
     Dates: start: 200808
  2. CIMZIA [Suspect]
     Indication: CROHN^S DISEASE
     Dosage: (200 MG /4 WEEKS SUBCUTANEOUS)
     Dates: start: 200808

REACTIONS (1)
  - Hospitalisation [None]
